FAERS Safety Report 23767447 (Version 2)
Quarter: 2024Q2

REPORT INFORMATION
  Report Type: Spontaneous
  Country: US (occurrence: US)
  Receive Date: 20240422
  Receipt Date: 20240509
  Transmission Date: 20240716
  Serious: No
  Sender: FDA-Public Use
  Company Number: US-ALCON LABORATORIES-ALC2023US003834

PATIENT
  Sex: Male

DRUGS (1)
  1. ROCKLATAN [Suspect]
     Active Substance: LATANOPROST\NETARSUDIL MESYLATE
     Indication: Glaucoma
     Dosage: UNK
     Route: 047

REACTIONS (6)
  - Product storage error [Unknown]
  - Product dispensing issue [Unknown]
  - Product size issue [Unknown]
  - Abnormal sensation in eye [Unknown]
  - Ocular discomfort [Unknown]
  - Eye irritation [Unknown]
